FAERS Safety Report 6889139-9 (Version None)
Quarter: 2010Q3

REPORT INFORMATION
  Report Type: 
  Country: None (occurrence: None)
  Receive Date: 20100730
  Receipt Date: 20071227
  Transmission Date: 20110219
  Serious: No
  Sender: FDA-Public Use
  Company Number: US-PFIZER INC-2008000315

PATIENT
  Sex: Female
  Weight: 68.181 kg

DRUGS (6)
  1. LIPITOR [Suspect]
     Indication: BLOOD CHOLESTEROL INCREASED
     Dates: start: 20030101
  2. METHOTREXATE [Concomitant]
  3. NAPROXEN [Concomitant]
  4. PREDNISOLONE [Concomitant]
  5. DETROL LA [Concomitant]
  6. THYROID TAB [Concomitant]
     Dates: start: 19830101

REACTIONS (4)
  - BLOOD THYROID STIMULATING HORMONE DECREASED [None]
  - BLOOD THYROID STIMULATING HORMONE INCREASED [None]
  - DIPLOPIA [None]
  - DRUG INEFFECTIVE [None]
